FAERS Safety Report 15833957 (Version 1)
Quarter: 2019Q1

REPORT INFORMATION
  Report Type: Spontaneous
  Country: US (occurrence: US)
  Receive Date: 20190116
  Receipt Date: 20190116
  Transmission Date: 20190417
  Serious: Yes (Other)
  Sender: FDA-Public Use
  Company Number: US-BAYER-2019-007764

PATIENT
  Age: 77 Year
  Sex: Female

DRUGS (2)
  1. CIPRO [Suspect]
     Active Substance: CIPROFLOXACIN HYDROCHLORIDE
     Indication: URINARY TRACT INFECTION
     Dosage: UNK
     Route: 048
     Dates: start: 20180214
  2. ALEVE [Concomitant]
     Active Substance: NAPROXEN SODIUM

REACTIONS (7)
  - Dyspepsia [Recovered/Resolved]
  - Musculoskeletal stiffness [None]
  - Back pain [Not Recovered/Not Resolved]
  - Hiatus hernia [None]
  - Dyspnoea [Recovering/Resolving]
  - Abdominal distension [Recovering/Resolving]
  - Vascular graft [None]

NARRATIVE: CASE EVENT DATE: 20180520
